FAERS Safety Report 9605118 (Version 1)
Quarter: 2013Q4

REPORT INFORMATION
  Report Type: Spontaneous
  Country: DE (occurrence: DE)
  Receive Date: 20131008
  Receipt Date: 20131008
  Transmission Date: 20140711
  Serious: Yes (Congenital Anomaly)
  Sender: FDA-Public Use
  Company Number: DE-TEVA-435510GER

PATIENT
  Age: 7 Month
  Sex: Female

DRUGS (4)
  1. LAMOTRIGIN [Suspect]
     Route: 064
  2. VOMEX A [Suspect]
     Route: 064
  3. ZOFRAN [Suspect]
     Route: 064
  4. FOLS?URE [Concomitant]
     Route: 064

REACTIONS (2)
  - Tethered cord syndrome [Recovered/Resolved with Sequelae]
  - Haemangioma congenital [Unknown]
